FAERS Safety Report 25841965 (Version 2)
Quarter: 2025Q4

REPORT INFORMATION
  Report Type: Report from Study
  Country: CA (occurrence: CA)
  Receive Date: 20250924
  Receipt Date: 20251007
  Transmission Date: 20260117
  Serious: Yes (Other)
  Sender: TAKEDA
  Company Number: CA-TAKEDA-2025TUS005742

PATIENT
  Age: 35 Year
  Sex: Female

DRUGS (2)
  1. VEDOLIZUMAB [Suspect]
     Active Substance: VEDOLIZUMAB
     Indication: Colitis ulcerative
     Dosage: 300 MILLIGRAM
  2. VEDOLIZUMAB [Suspect]
     Active Substance: VEDOLIZUMAB
     Indication: Colitis ulcerative
     Dosage: 108 MILLIGRAM, Q2WEEKS
     Dates: start: 20250220

REACTIONS (10)
  - Haematochezia [Unknown]
  - Diarrhoea [Unknown]
  - Viral infection [Not Recovered/Not Resolved]
  - Abdominal pain upper [Not Recovered/Not Resolved]
  - Hypophagia [Not Recovered/Not Resolved]
  - Frequent bowel movements [Unknown]
  - Impaired quality of life [Unknown]
  - Therapeutic reaction time decreased [Unknown]
  - Hyperhidrosis [Not Recovered/Not Resolved]
  - Constipation [Unknown]
